FAERS Safety Report 12607267 (Version 1)
Quarter: 2016Q3

REPORT INFORMATION
  Report Type: Spontaneous
  Country: AU (occurrence: AU)
  Receive Date: 20160729
  Receipt Date: 20160729
  Transmission Date: 20161109
  Serious: Yes (Hospitalization, Disabling, Other)
  Sender: FDA-Public Use
  Company Number: AU-VERNALIS THERAPEUTICS, INC.-2016VRN00040

PATIENT
  Age: 70 Year
  Sex: Female

DRUGS (1)
  1. AMOXICILLIN. [Suspect]
     Active Substance: AMOXICILLIN
     Route: 065

REACTIONS (9)
  - Visual acuity reduced [Not Recovered/Not Resolved]
  - Corneal disorder [Unknown]
  - Diarrhoea [None]
  - Photosensitivity reaction [Not Recovered/Not Resolved]
  - Device related infection [None]
  - Injury corneal [Not Recovered/Not Resolved]
  - Eye infection [Unknown]
  - Activities of daily living impaired [Unknown]
  - Toxic epidermal necrolysis [Not Recovered/Not Resolved]
